FAERS Safety Report 21835494 (Version 2)
Quarter: 2023Q1

REPORT INFORMATION
  Report Type: Spontaneous
  Country: US (occurrence: US)
  Receive Date: 20230109
  Receipt Date: 20230130
  Transmission Date: 20230417
  Serious: No
  Sender: FDA-Public Use
  Company Number: US-GBT-019164

PATIENT
  Sex: Female

DRUGS (1)
  1. OXBRYTA [Suspect]
     Active Substance: VOXELOTOR
     Indication: Product used for unknown indication
     Route: 048

REACTIONS (6)
  - Nausea [Recovered/Resolved]
  - Therapy cessation [Unknown]
  - Product dose omission issue [Unknown]
  - Product size issue [Unknown]
  - Diarrhoea [Unknown]
  - Nausea [Unknown]
